FAERS Safety Report 9468983 (Version 1)
Quarter: 2013Q3

REPORT INFORMATION
  Report Type: Spontaneous
  Country: IT (occurrence: FR)
  Receive Date: 20130821
  Receipt Date: 20130821
  Transmission Date: 20140515
  Serious: Yes (Hospitalization)
  Sender: FDA-Public Use
  Company Number: FR-FRI-1000047952

PATIENT
  Age: 70 Year
  Sex: Male

DRUGS (9)
  1. NEBIVOLOL [Suspect]
     Indication: HYPERTENSION
     Dosage: 5 MG
     Route: 048
     Dates: start: 2012, end: 20130712
  2. COOLMETEC [Concomitant]
     Indication: HYPERTENSION
     Dosage: 40 MG/25 MG
     Route: 048
     Dates: end: 20130712
  3. LANTUS [Concomitant]
     Indication: TYPE 2 DIABETES MELLITUS
     Dosage: 25 IU
     Route: 058
  4. GLUCOPHAGE [Concomitant]
     Indication: TYPE 2 DIABETES MELLITUS
     Dosage: 2000 MG
     Route: 048
  5. KARDEGIC [Concomitant]
     Indication: CARDIOVASCULAR EVENT PROPHYLAXIS
     Dosage: 75 MG
     Route: 048
  6. ALPRESS [Concomitant]
     Indication: HYPERTENSION
     Dosage: 10 MG
     Route: 048
  7. LERCAN [Concomitant]
     Indication: HYPERTENSION
     Dosage: 20 MG
     Route: 048
  8. ZOCOR [Concomitant]
     Indication: DYSLIPIDAEMIA
     Dosage: 20 MG
     Route: 048
  9. INIPOMP [Concomitant]
     Dosage: 40 MG
     Route: 048

REACTIONS (2)
  - Ventricular asystole [Recovered/Resolved with Sequelae]
  - Sinus bradycardia [Recovered/Resolved with Sequelae]
